FAERS Safety Report 5581408-8 (Version None)
Quarter: 2008Q1

REPORT INFORMATION
  Report Type: 
  Country: None (occurrence: None)
  Receive Date: 20080104
  Receipt Date: 20080103
  Transmission Date: 20080703
  Serious: Yes (Death, Hospitalization)
  Sender: FDA-Public Use
  Company Number: US-BRISTOL-MYERS SQUIBB COMPANY-13780945

PATIENT
  Age: 78 Year
  Sex: Female

DRUGS (21)
  1. TEQUIN [Suspect]
     Indication: BRONCHITIS
     Dates: start: 20020620, end: 20020629
  2. HYDREA [Concomitant]
     Route: 048
  3. AGRYLIN [Concomitant]
     Route: 048
  4. ASPIRIN [Concomitant]
  5. NIFEREX [Concomitant]
     Route: 048
  6. PREDNISONE [Concomitant]
  7. PRILOSEC [Concomitant]
  8. LASIX [Concomitant]
     Route: 048
  9. TENORMIN [Concomitant]
  10. COZAAR [Concomitant]
  11. SPIRONOLACTONE [Concomitant]
  12. SINEMET [Concomitant]
     Dosage: 25 MG/100MG.
  13. WELLBUTRIN [Concomitant]
     Route: 048
  14. ALLOPURINOL [Concomitant]
     Route: 048
  15. NEURONTIN [Concomitant]
  16. AMBIEN [Concomitant]
  17. VITAMINS [Concomitant]
  18. NYSTATIN SWISH [Concomitant]
  19. PROTONIX [Concomitant]
  20. XANAX [Concomitant]
     Indication: ANXIETY
  21. LEVAQUIN [Concomitant]
     Indication: BRONCHITIS

REACTIONS (5)
  - CARDIAC FAILURE CONGESTIVE [None]
  - DIABETES MELLITUS [None]
  - DIABETIC KETOACIDOSIS [None]
  - HYPERGLYCAEMIA [None]
  - RENAL FAILURE CHRONIC [None]
